FAERS Safety Report 19207216 (Version 1)
Quarter: 2021Q2

REPORT INFORMATION
  Report Type: Other
  Country: CN (occurrence: CN)
  Receive Date: 20210501
  Receipt Date: 20210501
  Transmission Date: 20210717
  Serious: Yes (Hospitalization)
  Sender: FDA-Public Use
  Company Number: CN-ROCHE-2821657

PATIENT
  Age: 21 Year
  Sex: Male
  Weight: 65 kg

DRUGS (4)
  1. MYCOPHENOLATE MOFETIL. [Suspect]
     Active Substance: MYCOPHENOLATE MOFETIL
     Indication: IGA NEPHROPATHY
     Dosage: DOSE: 6 MONTHS AT 1.0 OR 1.5 G/D IN PATIENTS WITH A BODY WEIGHT OF { 50 OR }/=50 KG, RESPECTIVELY.
     Route: 065
  2. PREDNISONE. [Suspect]
     Active Substance: PREDNISONE
     Indication: IGA NEPHROPATHY
     Dosage: DOSE: 30 TO 40 MG/D FOR 2 MONTHS, AND THEN TAPERED BY 20% EACH MONTH FOR THE NEXT 4 MONTHS
     Route: 065
  3. MYCOPHENOLATE MOFETIL. [Suspect]
     Active Substance: MYCOPHENOLATE MOFETIL
     Indication: CHRONIC KIDNEY DISEASE
  4. PREDNISONE. [Suspect]
     Active Substance: PREDNISONE
     Indication: CHRONIC KIDNEY DISEASE

REACTIONS (3)
  - Diabetes mellitus [Unknown]
  - Leukopenia [Unknown]
  - Hepatotoxicity [Unknown]
